FAERS Safety Report 7694591-5 (Version None)
Quarter: 2011Q3

REPORT INFORMATION
  Report Type: 
  Country: None (occurrence: None)
  Receive Date: 20110816
  Receipt Date: 20110809
  Transmission Date: 20111222
  Serious: Yes (Hospitalization)
  Sender: FDA-Public Use
  Company Number: 2010SP032251

PATIENT
  Age: 23 Year
  Sex: Female
  Weight: 81.6475 kg

DRUGS (11)
  1. BUSPIRONE [Concomitant]
  2. TYLENOL-500 [Concomitant]
  3. FLONASE [Concomitant]
  4. COUMADIN [Suspect]
     Indication: ANTICOAGULANT THERAPY
     Dates: start: 20080610
  5. ADVAIR DISKUS 100/50 [Concomitant]
  6. SINGULAIR [Concomitant]
  7. NUVARING [Suspect]
     Indication: WEIGHT INCREASED
     Dates: start: 20080301, end: 20080601
  8. NUVARING [Suspect]
     Indication: CONTRACEPTION
     Dates: start: 20080301, end: 20080601
  9. ASTELIN [Concomitant]
  10. CELEXA [Concomitant]
  11. TOPROL-XL [Concomitant]

REACTIONS (17)
  - PREGNANCY [None]
  - MIGRAINE [None]
  - CONDITION AGGRAVATED [None]
  - DEEP VEIN THROMBOSIS [None]
  - HEADACHE [None]
  - ABORTION SPONTANEOUS [None]
  - ABDOMINAL PAIN LOWER [None]
  - JOINT INJURY [None]
  - LYMPHADENITIS [None]
  - LUNG INFILTRATION [None]
  - ASTHMA [None]
  - INFECTION [None]
  - HYPOTENSION [None]
  - VENOUS INSUFFICIENCY [None]
  - MATERNAL EXPOSURE BEFORE PREGNANCY [None]
  - INTRA-UTERINE DEATH [None]
  - COUGH [None]
